FAERS Safety Report 4321853-1 (Version None)
Quarter: 2004Q1

REPORT INFORMATION
  Report Type: 
  Country: None (occurrence: None)
  Receive Date: 20040322
  Receipt Date: 20040322
  Transmission Date: 20041129
  Serious: Yes (Hospitalization)
  Sender: FDA-Public Use
  Company Number: None

PATIENT
  Age: 65 Year
  Sex: Male

DRUGS (1)
  1. TRAZODONE HCL [Suspect]
     Indication: SOMNOLENCE
     Dosage: 100 MG PO QHS
     Route: 048

REACTIONS (4)
  - BALANCE DISORDER [None]
  - NAUSEA [None]
  - SOMNOLENCE [None]
  - URINE OUTPUT DECREASED [None]
